FAERS Safety Report 15393717 (Version 1)
Quarter: 2018Q3

REPORT INFORMATION
  Report Type: Report from Study
  Country: US (occurrence: US)
  Receive Date: 20180917
  Receipt Date: 20180917
  Transmission Date: 20181010
  Serious: Yes (Hospitalization, Other)
  Sender: FDA-Public Use
  Company Number: US-GILEAD-2018-0362907

PATIENT
  Age: 51 Year
  Sex: Male

DRUGS (19)
  1. AMBRISENTAN [Suspect]
     Active Substance: AMBRISENTAN
     Indication: PULMONARY ARTERIAL HYPERTENSION
     Dosage: 5 MG, QD
     Route: 065
  2. METRONIDAZOLE. [Concomitant]
     Active Substance: METRONIDAZOLE
  3. LEVOTHYROXIN [Concomitant]
     Active Substance: LEVOTHYROXINE
  4. LEVOFLOXACIN. [Concomitant]
     Active Substance: LEVOFLOXACIN
  5. SILDENAFIL. [Suspect]
     Active Substance: SILDENAFIL
     Indication: PULMONARY ARTERIAL HYPERTENSION
     Dosage: 40 MG, BID
     Route: 065
     Dates: start: 20161230
  6. ULORIC [Concomitant]
     Active Substance: FEBUXOSTAT
  7. CARTIA XT [Concomitant]
     Active Substance: DILTIAZEM HYDROCHLORIDE
  8. DIAZEPAM. [Concomitant]
     Active Substance: DIAZEPAM
  9. DOXYCYCLINE MONOHYDRATE [Concomitant]
     Active Substance: DOXYCYCLINE
  10. SENEXON?S [Concomitant]
     Active Substance: DOCUSATE SODIUM\SENNOSIDES A AND B
  11. FUROSEMIDE. [Concomitant]
     Active Substance: FUROSEMIDE
  12. MAGNESIUM OXIDE. [Concomitant]
     Active Substance: MAGNESIUM OXIDE
  13. IBUPROFEN. [Concomitant]
     Active Substance: IBUPROFEN
  14. ZOLPIDEM [Concomitant]
     Active Substance: ZOLPIDEM\ZOLPIDEM TARTRATE
  15. METHYLPRED [Concomitant]
     Active Substance: METHYLPREDNISOLONE
  16. DILTIAZEM. [Concomitant]
     Active Substance: DILTIAZEM
  17. METOLAZONE. [Concomitant]
     Active Substance: METOLAZONE
  18. BUMETANIDE. [Concomitant]
     Active Substance: BUMETANIDE
  19. POTASSIUM CHLORIDE. [Concomitant]
     Active Substance: POTASSIUM CHLORIDE

REACTIONS (1)
  - Pulmonary arterial hypertension [Unknown]

NARRATIVE: CASE EVENT DATE: 20180727
